FAERS Safety Report 8794885 (Version 2)
Quarter: 2015Q2

REPORT INFORMATION
  Report Type: Report from Study
  Country: US (occurrence: US)
  Receive Date: 20120918
  Receipt Date: 20150619
  Transmission Date: 20150821
  Serious: Yes (Death)
  Sender: FDA-Public Use
  Company Number: US-ROCHE-1123396

PATIENT
  Sex: Female
  Weight: 58 kg

DRUGS (5)
  1. IRESSA [Concomitant]
     Active Substance: GEFITINIB
     Route: 065
     Dates: start: 200411, end: 200501
  2. AVASTIN [Suspect]
     Active Substance: BEVACIZUMAB
     Indication: RENAL CANCER
     Route: 065
     Dates: start: 20040526
  3. AVASTIN [Suspect]
     Active Substance: BEVACIZUMAB
     Indication: HAEMATOLOGICAL MALIGNANCY
  4. TARCEVA [Concomitant]
     Active Substance: ERLOTINIB HYDROCHLORIDE
     Route: 065
     Dates: start: 200501, end: 200511
  5. AREDIA [Concomitant]
     Active Substance: PAMIDRONATE DISODIUM

REACTIONS (2)
  - Death [Fatal]
  - Off label use [Unknown]
